FAERS Safety Report 7679633-5 (Version None)
Quarter: 2011Q3

REPORT INFORMATION
  Report Type: 
  Country: None (occurrence: None)
  Receive Date: 20110812
  Receipt Date: 20110808
  Transmission Date: 20111222
  Serious: Yes (Hospitalization, Other)
  Sender: FDA-Public Use
  Company Number: US-PFIZER INC-2011129669

PATIENT
  Sex: Female

DRUGS (7)
  1. ALBUTEROL SULFATE AUTOHALER [Concomitant]
     Indication: ASTHMA
     Dosage: UNK
     Dates: start: 20060101, end: 20090101
  2. HYDROCODONE [Concomitant]
     Indication: PAIN
     Dosage: UNK
     Dates: start: 20030101, end: 20110101
  3. SALBUTAMOL [Concomitant]
     Indication: ASTHMA
     Dosage: UNK
     Dates: start: 20060101, end: 20090101
  4. PREDNISONE [Concomitant]
     Indication: INFLAMMATION
     Dosage: UNK
     Dates: start: 20060101, end: 20090101
  5. CHANTIX [Suspect]
     Indication: SMOKING CESSATION THERAPY
     Dosage: 0.5MG/1MG
     Dates: start: 20080301, end: 20080401
  6. EPIPEN [Concomitant]
     Indication: ANAPHYLACTIC REACTION
     Dosage: UNK
     Dates: start: 20050101
  7. VERAPAMIL [Concomitant]
     Indication: BLOOD PRESSURE
     Dosage: UNK
     Dates: start: 20070101

REACTIONS (7)
  - INTENTIONAL OVERDOSE [None]
  - INSOMNIA [None]
  - SUICIDE ATTEMPT [None]
  - DEPRESSION [None]
  - ANXIETY [None]
  - NIGHTMARE [None]
  - ABNORMAL BEHAVIOUR [None]
